FAERS Safety Report 12727124 (Version 1)
Quarter: 2016Q3

REPORT INFORMATION
  Report Type: Spontaneous
  Country: IT (occurrence: IT)
  Receive Date: 20160909
  Receipt Date: 20160909
  Transmission Date: 20161109
  Serious: Yes (Hospitalization)
  Sender: FDA-Public Use
  Company Number: IT-ASTRAZENECA-2016SE94493

PATIENT
  Age: 24301 Day
  Sex: Male
  Weight: 95 kg

DRUGS (7)
  1. MOVICOL [Concomitant]
     Active Substance: POLYETHYLENE GLYCOL 3350\POTASSIUM CHLORIDE\SODIUM BICARBONATE\SODIUM CHLORIDE
     Dosage: 3.8 G POWDER FOR ORAL SOLUTION, 2DF
     Route: 048
  2. CAPECITABINE. [Suspect]
     Active Substance: CAPECITABINE
     Indication: COLON CANCER
     Route: 048
     Dates: start: 20160801, end: 20160808
  3. DIAZEPAM. [Concomitant]
     Active Substance: DIAZEPAM
     Dosage: ORAL DROPS, SOLUTION, 20 DF
     Route: 048
  4. PURSENNIID [Concomitant]
     Dosage: 1.0DF UNKNOWN
  5. SEROQUEL [Suspect]
     Active Substance: QUETIAPINE FUMARATE
     Indication: PSYCHOTIC DISORDER
     Route: 048
  6. ENTUMIN [Suspect]
     Active Substance: CLOTHIAPINE
     Dosage: 100 MG/ML ORAL DROPS, SOLUTION, 5 DF DAILY
     Route: 048
  7. LORAZEPAM. [Concomitant]
     Active Substance: LORAZEPAM
     Dosage: 2.5MG UNKNOWN
     Route: 048

REACTIONS (4)
  - Red blood cell count abnormal [Recovering/Resolving]
  - Haemoglobin decreased [Recovering/Resolving]
  - White blood cell count increased [Unknown]
  - Platelet count decreased [Recovering/Resolving]

NARRATIVE: CASE EVENT DATE: 20160808
